FAERS Safety Report 13097367 (Version 3)
Quarter: 2017Q1

REPORT INFORMATION
  Report Type: Spontaneous
  Country: JP (occurrence: JP)
  Receive Date: 20170109
  Receipt Date: 20170216
  Transmission Date: 20170428
  Serious: Yes (Other)
  Sender: FDA-Public Use
  Company Number: JP-PFIZER INC-2017005859

PATIENT
  Age: 85 Year
  Sex: Female

DRUGS (16)
  1. BOFUTSUSHOSAN [Concomitant]
     Active Substance: HERBALS
     Dosage: 2.5 G, 2X/DAY
     Route: 048
  2. FAMOTIDINE. [Concomitant]
     Active Substance: FAMOTIDINE
     Dosage: 1 DF, 1X/DAY
     Route: 048
  3. SENNOSIDE [Concomitant]
     Active Substance: SENNOSIDES
     Dosage: 2 DF, 1X/DAY
     Route: 048
  4. LISINOPRIL. [Concomitant]
     Active Substance: LISINOPRIL
     Dosage: 1 DF, 1X/DAY
     Route: 048
     Dates: start: 20161006
  5. CEFAZOLIN [Concomitant]
     Active Substance: CEFAZOLIN
     Dosage: 3 G, DAILY
     Dates: start: 20161215, end: 20161219
  6. CEFAZOLIN [Concomitant]
     Active Substance: CEFAZOLIN
     Dosage: 2 G, DAILY
     Dates: start: 20161214, end: 20161214
  7. FUROSEMIDE. [Concomitant]
     Active Substance: FUROSEMIDE
     Dosage: 1 DF, 1X/DAY
     Route: 048
  8. SPIRONOLACTONE. [Concomitant]
     Active Substance: SPIRONOLACTONE
     Dosage: 1 DF, 1X/DAY
     Route: 048
     Dates: start: 20161006
  9. URSODEOXYCHOLIC ACID [Concomitant]
     Active Substance: URSODIOL
     Dosage: 1 DF, 3X/DAY
     Route: 048
  10. CEFAZOLIN [Concomitant]
     Active Substance: CEFAZOLIN
     Dosage: 1 G, DAILY
     Dates: start: 20161213, end: 20161213
  11. PRIMPERAN [Concomitant]
     Active Substance: METOCLOPRAMIDE HYDROCHLORIDE
     Dosage: 10 MG, DAILY
     Dates: start: 20161224, end: 20161226
  12. ETIZOLAM [Concomitant]
     Active Substance: ETIZOLAM
     Dosage: 1 DF, 2X/DAY
     Route: 048
  13. SOLACET F [Concomitant]
     Dosage: 1000 ML, DAILY
     Dates: start: 20161213, end: 20161213
  14. ZYVOX [Suspect]
     Active Substance: LINEZOLID
     Indication: ARTHRITIS
     Dosage: 600 MG, 2X/DAY
     Route: 041
     Dates: start: 20161220, end: 20170103
  15. NIFEDIPINE. [Concomitant]
     Active Substance: NIFEDIPINE
     Dosage: 1 DF, 2X/DAY
     Route: 048
  16. NIFEDIPINE. [Concomitant]
     Active Substance: NIFEDIPINE
     Dosage: 2 DF, 2X/DAY
     Dates: start: 20161006

REACTIONS (3)
  - Hypokalaemia [Recovered/Resolved]
  - Hyponatraemia [Recovered/Resolved]
  - Hypochloraemia [Recovered/Resolved]

NARRATIVE: CASE EVENT DATE: 20161227
